FAERS Safety Report 13899874 (Version 1)
Quarter: 2017Q3

REPORT INFORMATION
  Report Type: Spontaneous
  Country: US (occurrence: US)
  Receive Date: 20170823
  Receipt Date: 20170823
  Transmission Date: 20171127
  Serious: No
  Sender: FDA-Public Use
  Company Number: GXBR2017US002066

PATIENT
  Sex: Male
  Weight: 72.56 kg

DRUGS (1)
  1. CARTEOLOL HCL [Suspect]
     Active Substance: CARTEOLOL HYDROCHLORIDE
     Indication: EYE DISORDER
     Dosage: 1 DRP, BID (IN BOTH EYES)
     Route: 047

REACTIONS (1)
  - Intraocular pressure increased [Not Recovered/Not Resolved]
